FAERS Safety Report 7711622-4 (Version None)
Quarter: 2011Q3

REPORT INFORMATION
  Report Type: 
  Country: None (occurrence: None)
  Receive Date: 20110826
  Receipt Date: 20110615
  Transmission Date: 20111222
  Serious: No
  Sender: FDA-Public Use
  Company Number: US-BRISTOL-MYERS SQUIBB COMPANY-15801087

PATIENT
  Age: 72 Year
  Sex: Male

DRUGS (4)
  1. LOSARTAN [Concomitant]
     Indication: HYPERTENSION
  2. OMEGA [Concomitant]
  3. ONGLYZA [Suspect]
  4. FISH OIL [Concomitant]

REACTIONS (1)
  - COUGH [None]
